FAERS Safety Report 5072152-4 (Version None)
Quarter: 2006Q3

REPORT INFORMATION
  Report Type: 
  Country: None (occurrence: None)
  Receive Date: 20060717
  Receipt Date: 20060313
  Transmission Date: 20061208
  Serious: No
  Sender: FDA-Public Use
  Company Number: 2006000614

PATIENT
  Age: 76 Year
  Sex: Female

DRUGS (4)
  1. TARCEVA [Suspect]
     Indication: BREAST CANCER METASTATIC
     Dosage: 100 MG (QD), ORAL
     Route: 048
     Dates: start: 20060222
  2. TAMOXIPEN (TAMOXIFEN) [Concomitant]
  3. ARIMIDEX [Concomitant]
  4. HERCEPTIN [Concomitant]

REACTIONS (3)
  - IMPAIRED HEALING [None]
  - SKIN FISSURES [None]
  - STOMATITIS [None]
